FAERS Safety Report 23092729 (Version 1)
Quarter: 2023Q4

REPORT INFORMATION
  Report Type: Report from Study
  Country: EG (occurrence: EG)
  Receive Date: 20231021
  Receipt Date: 20231021
  Transmission Date: 20240110
  Serious: Yes (Disabling)
  Sender: FDA-Public Use
  Company Number: EG-002147023-NVSC2023EG223793

PATIENT
  Sex: Female

DRUGS (1)
  1. GILENYA [Suspect]
     Active Substance: FINGOLIMOD HYDROCHLORIDE
     Indication: Multiple sclerosis
     Dosage: UNK
     Route: 048

REACTIONS (4)
  - Gait disturbance [Unknown]
  - Insomnia [Unknown]
  - Fatigue [Unknown]
  - Drug ineffective [Unknown]
